FAERS Safety Report 6095362-6 (Version None)
Quarter: 2009Q1

REPORT INFORMATION
  Report Type: 
  Country: None (occurrence: None)
  Receive Date: 20090227
  Receipt Date: 20080506
  Transmission Date: 20090719
  Serious: No
  Sender: FDA-Public Use
  Company Number: A0715616A

PATIENT
  Age: 45 Year
  Sex: Female
  Weight: 72.7 kg

DRUGS (1)
  1. LAMICTAL [Suspect]
     Indication: BIPOLAR DISORDER
     Dosage: 300MGD PER DAY
     Route: 048
     Dates: start: 20071101

REACTIONS (4)
  - DYSPHAGIA [None]
  - FOREIGN BODY TRAUMA [None]
  - PRODUCT QUALITY ISSUE [None]
  - VOMITING [None]
